FAERS Safety Report 5416933-3 (Version None)
Quarter: 2007Q3

REPORT INFORMATION
  Report Type: 
  Country: None (occurrence: None)
  Receive Date: 20070816
  Receipt Date: 20070809
  Transmission Date: 20080115
  Serious: Yes (Other)
  Sender: FDA-Public Use
  Company Number: TR-JNJFOC-20070802383

PATIENT
  Age: 47 Year
  Sex: Male
  Weight: 90 kg

DRUGS (4)
  1. DURAGESIC-100 [Suspect]
     Indication: THROMBOANGIITIS OBLITERANS
     Route: 062
  2. TRAMADOL HCL [Concomitant]
     Indication: PAIN
     Route: 065
  3. ACETAMINOPHEN W/ CODEINE [Concomitant]
     Indication: PAIN
     Route: 065
  4. NAPROXEN SODIUM [Concomitant]
     Indication: PAIN
     Route: 065

REACTIONS (2)
  - DRUG WITHDRAWAL SYNDROME [None]
  - FEELING ABNORMAL [None]
